FAERS Safety Report 5543019-X (Version None)
Quarter: 2007Q4

REPORT INFORMATION
  Report Type: 
  Country: None (occurrence: None)
  Receive Date: 20071123
  Receipt Date: 20070116
  Transmission Date: 20080405
  Serious: Yes (Other)
  Sender: FDA-Public Use
  Company Number: US-JNJFOC-20070104001

PATIENT
  Age: 51 Year
  Sex: Male

DRUGS (3)
  1. LEVAQUIN [Suspect]
     Indication: BRONCHITIS
     Dosage: 500 MG, 1 IN 1 DAY, ORAL
     Route: 048
     Dates: start: 20061220
  2. BYETTA [Suspect]
     Indication: TYPE 2 DIABETES MELLITUS
     Dosage: 5 UG, 2 IN 1 DAY, SUBCUTANEOUS, 10 UG, 2 IN 1 DAY, SUBCUTANEOUS
     Route: 058
     Dates: start: 20061001, end: 20061101
  3. BYETTA [Suspect]
     Indication: TYPE 2 DIABETES MELLITUS
     Dosage: 5 UG, 2 IN 1 DAY, SUBCUTANEOUS, 10 UG, 2 IN 1 DAY, SUBCUTANEOUS
     Route: 058
     Dates: start: 20061101

REACTIONS (2)
  - BLOOD GLUCOSE DECREASED [None]
  - DIZZINESS [None]
